FAERS Safety Report 9507970 (Version 1)
Quarter: 2013Q1

REPORT INFORMATION
  Report Type: Spontaneous
  Country: US (occurrence: None)
  Receive Date: 20130305
  Receipt Date: 20130305
  Transmission Date: 20140127
  Serious: Yes (Other)
  Sender: FDA-Public Use
  Company Number: 163-21880-12090130

PATIENT
  Age: 57 Year
  Sex: Male
  Weight: 70.76 kg

DRUGS (7)
  1. REVLIMID (LENALIDOMIDE) (25 MILLIGRAM, CAPSULES) [Suspect]
     Indication: PLASMA CELL MYELOMA
     Dosage: 25 MG, 1 IN 1 D, PO
     Route: 048
     Dates: start: 201104
  2. ASPIRIN (ACETYLSALICYLIC ACID) (UNKNOWN) (ACETYLSALICYLIC ACID) [Concomitant]
  3. BACTRIM (BACTRIM) (UNKNOWN) [Concomitant]
  4. CALCIUM (CALCIUM) (UNKNOWN) [Concomitant]
  5. METOPROLOL (METOPROLOL) (UNKNOWN) [Concomitant]
  6. NORVASC (AMLODIPINE BESILATE) (UNKNOWN) [Concomitant]
  7. PREVACID (LANSOPRAZOLE) (UNKNOWN) [Concomitant]

REACTIONS (1)
  - Blood creatinine decreased [None]
